FAERS Safety Report 8482456-0 (Version None)
Quarter: 2012Q3

REPORT INFORMATION
  Report Type: 
  Country: None (occurrence: None)
  Receive Date: 20120702
  Receipt Date: 20120626
  Transmission Date: 20120928
  Serious: Yes (Hospitalization)
  Sender: FDA-Public Use
  Company Number: IT-GLAXOSMITHKLINE-B0811169A

PATIENT
  Sex: Female

DRUGS (2)
  1. DAPAROX [Suspect]
     Indication: ABNORMAL BEHAVIOUR
     Dosage: 20MG PER DAY
     Route: 048
     Dates: start: 20111202, end: 20120107
  2. LAMICTAL [Suspect]
     Indication: ABNORMAL BEHAVIOUR
     Dosage: 100MG PER DAY
     Route: 048
     Dates: start: 20111202, end: 20120107

REACTIONS (4)
  - DRUG RASH WITH EOSINOPHILIA AND SYSTEMIC SYMPTOMS [None]
  - LEUKOCYTOSIS [None]
  - ERYTHEMA [None]
  - LYMPHADENOPATHY [None]
